FAERS Safety Report 8846503 (Version 1)
Quarter: 2012Q4

REPORT INFORMATION
  Report Type: 
  Country: US (occurrence: US)
  Receive Date: 20121017
  Receipt Date: 20121017
  Transmission Date: 20130627
  Serious: No
  Sender: FDA-Public Use
  Company Number: US-GLAXOSMITHKLINE-A0964883A

PATIENT
  Sex: Female

DRUGS (3)
  1. CEFTIN [Suspect]
     Route: 065
  2. LIPITOR [Concomitant]
     Dosage: 80MG Per day
  3. ZOLOFT [Concomitant]
     Dosage: 50MG Per day

REACTIONS (1)
  - Drug hypersensitivity [Unknown]
